FAERS Safety Report 15695604 (Version 1)
Quarter: 2018Q4

REPORT INFORMATION
  Report Type: Spontaneous
  Country: US (occurrence: US)
  Receive Date: 20181126
  Receipt Date: 20181126
  Transmission Date: 20190205
  Serious: Yes (Death, Hospitalization)
  Sender: FDA-Public Use
  Company Number: None

PATIENT
  Age: 13 Year
  Sex: Female
  Weight: 42.3 kg

DRUGS (5)
  1. METHOTREXATE. [Suspect]
     Active Substance: METHOTREXATE
     Dates: end: 20181026
  2. VINCRISTINE SULFATE. [Suspect]
     Active Substance: VINCRISTINE SULFATE
  3. DEXAMETHASONE. [Suspect]
     Active Substance: DEXAMETHASONE
     Dates: end: 20181023
  4. ONCASPAR [Suspect]
     Active Substance: PEGASPARGASE
  5. MITOXANTRONE HYDROCHLORIDE. [Suspect]
     Active Substance: MITOXANTRONE HYDROCHLORIDE

REACTIONS (12)
  - Ileus [None]
  - Renal failure [None]
  - Haemodialysis [None]
  - Septic shock [None]
  - Respiratory failure [None]
  - Pathogen resistance [None]
  - Cardiac failure [None]
  - Cardiac arrest [None]
  - Oesophageal candidiasis [None]
  - Candida infection [None]
  - Systemic candida [None]
  - Pancreatitis [None]

NARRATIVE: CASE EVENT DATE: 20181109
